FAERS Safety Report 4911734-4 (Version None)
Quarter: 2006Q1

REPORT INFORMATION
  Report Type: 
  Country: None (occurrence: None)
  Receive Date: 20060213
  Receipt Date: 20060131
  Transmission Date: 20060701
  Serious: Yes (Other)
  Sender: FDA-Public Use
  Company Number: US-2005-023601

PATIENT
  Age: 50 Year
  Sex: Female
  Weight: 61.2 kg

DRUGS (11)
  1. BETASERON [Suspect]
     Indication: RELAPSING-REMITTING MULTIPLE SCLEROSIS
     Dosage: SUBCUTANEOUS
     Route: 058
     Dates: start: 20030806, end: 20040701
  2. BETASERON [Suspect]
     Indication: RELAPSING-REMITTING MULTIPLE SCLEROSIS
     Dosage: SUBCUTANEOUS
     Route: 058
     Dates: start: 20050301, end: 20051020
  3. PLAVIX [Concomitant]
  4. LIPITOR [Concomitant]
  5. ATORVASTATIN CALCIUM [Concomitant]
  6. ZOLOFT [Concomitant]
  7. COREG [Concomitant]
  8. ZETIA [Concomitant]
  9. MAVIK [Concomitant]
  10. HYDROCHLOROTHIAZIDE [Concomitant]
  11. POTASSIUM (POTASSIUM) [Concomitant]

REACTIONS (4)
  - CHEST PAIN [None]
  - MYOCARDIAL INFARCTION [None]
  - PAIN IN EXTREMITY [None]
  - STENT OCCLUSION [None]
